FAERS Safety Report 15359820 (Version 1)
Quarter: 2018Q4

REPORT INFORMATION
  Report Type: Spontaneous
  Country: IR (occurrence: IR)
  Receive Date: 20180907
  Receipt Date: 20180907
  Transmission Date: 20190204
  Serious: Yes (Hospitalization)
  Sender: FDA-Public Use
  Company Number: IR-VIVIMED-2017SP015386

PATIENT

DRUGS (3)
  1. ZOLPIDEM [Suspect]
     Active Substance: ZOLPIDEM\ZOLPIDEM TARTRATE
     Dosage: TITRATED UP TO 570 MG PER DAY, DIVIDED DOSAGE
     Route: 065
  2. ZOLPIDEM [Suspect]
     Active Substance: ZOLPIDEM\ZOLPIDEM TARTRATE
     Indication: INSOMNIA
     Dosage: 10 MG, UNKNOWN
     Route: 065
  3. OPIUM                              /00036301/ [Suspect]
     Active Substance: OPIUM
     Indication: PRODUCT USED FOR UNKNOWN INDICATION
     Dosage: UNK
     Route: 065

REACTIONS (18)
  - Impatience [Recovered/Resolved]
  - Asthenia [Recovered/Resolved]
  - Drug abuse [Recovered/Resolved]
  - Restlessness [Recovered/Resolved]
  - Distractibility [Recovered/Resolved]
  - Chills [Recovered/Resolved]
  - Dizziness [Recovered/Resolved]
  - Irritability [Recovered/Resolved]
  - Increased appetite [Recovered/Resolved]
  - Anxiety [Recovered/Resolved]
  - Drug dependence [Recovered/Resolved]
  - Intentional product misuse [Recovered/Resolved]
  - Withdrawal syndrome [Recovered/Resolved]
  - Crying [Recovered/Resolved]
  - Agitation [Recovered/Resolved]
  - Insomnia [Recovered/Resolved]
  - Headache [Recovered/Resolved]
  - Aggression [Recovered/Resolved]
